FAERS Safety Report 17860297 (Version 3)
Quarter: 2020Q3

REPORT INFORMATION
  Report Type: Spontaneous
  Country: US (occurrence: US)
  Receive Date: 20200604
  Receipt Date: 20200706
  Transmission Date: 20201103
  Serious: Yes (Hospitalization, Other)
  Sender: FDA-Public Use
  Company Number: US-AMGEN-USASP2020086335

PATIENT
  Age: 71 Year
  Sex: Female
  Weight: 79 kg

DRUGS (5)
  1. OTEZLA [Suspect]
     Active Substance: APREMILAST
     Dosage: 30 MILLIGRAM, BID
     Route: 065
     Dates: start: 202005
  2. OTEZLA [Suspect]
     Active Substance: APREMILAST
     Indication: PSORIASIS
     Dosage: 30 MILLIGRAM, BID
     Route: 065
     Dates: start: 202002, end: 202004
  3. LISINOPRIL. [Concomitant]
     Active Substance: LISINOPRIL
  4. VITAMIN D [COLECALCIFEROL] [Concomitant]
     Active Substance: CHOLECALCIFEROL
  5. CARVEDILOL. [Concomitant]
     Active Substance: CARVEDILOL

REACTIONS (8)
  - Psoriasis [Recovering/Resolving]
  - Pneumonia [Recovering/Resolving]
  - Pain [Recovering/Resolving]
  - Abdominal pain upper [Recovering/Resolving]
  - Vomiting [Recovering/Resolving]
  - Pancreatitis [Recovering/Resolving]
  - Hepatitis [Recovering/Resolving]
  - Cholecystectomy [Recovering/Resolving]

NARRATIVE: CASE EVENT DATE: 2020
